FAERS Safety Report 18394467 (Version 1)
Quarter: 2020Q4

REPORT INFORMATION
  Report Type: Spontaneous
  Country: US (occurrence: US)
  Receive Date: 20201016
  Receipt Date: 20201016
  Transmission Date: 20210114
  Serious: No
  Sender: FDA-Public Use
  Company Number: US-ELI_LILLY_AND_COMPANY-US202002000369

PATIENT

DRUGS (2)
  1. BOTOX [Concomitant]
     Active Substance: ONABOTULINUMTOXINA
     Indication: MIGRAINE
     Dosage: UNK, EVERY 12 WEEKS
     Route: 065
     Dates: start: 2017
  2. EMGALITY [Suspect]
     Active Substance: GALCANEZUMAB-GNLM
     Indication: MIGRAINE
     Dosage: UNK, UNKNOWN
     Route: 065

REACTIONS (8)
  - Confusional state [Unknown]
  - Vertigo [Unknown]
  - Arthralgia [Unknown]
  - Migraine [Unknown]
  - Pain [Unknown]
  - Hyperhidrosis [Unknown]
  - Constipation [Unknown]
  - Weight increased [Unknown]
